FAERS Safety Report 11217330 (Version 1)
Quarter: 2015Q2

REPORT INFORMATION
  Report Type: Spontaneous
  Country: RO (occurrence: RO)
  Receive Date: 20150625
  Receipt Date: 20150625
  Transmission Date: 20150821
  Serious: Yes (Other)
  Sender: FDA-Public Use
  Company Number: RO-SUN PHARMACEUTICAL INDUSTRIES LTD-2015RR-99293

PATIENT

DRUGS (5)
  1. ERTAPENEM [Concomitant]
     Active Substance: ERTAPENEM
     Indication: ABSCESS BACTERIAL
     Dosage: 1 G, DAILY
     Route: 065
  2. LINEZOLID. [Concomitant]
     Active Substance: LINEZOLID
     Indication: ABSCESS BACTERIAL
     Dosage: 600 MG, BID
     Route: 065
  3. TIGECYCLIN [Concomitant]
     Indication: ABSCESS BACTERIAL
     Dosage: 50 MG, BID, WITH LOADING DOSE OF 100MG
     Route: 065
  4. CIPROFLOXACIN. [Suspect]
     Active Substance: CIPROFLOXACIN
     Indication: ABSCESS BACTERIAL
     Dosage: 1000 MG, DAILY
     Route: 048
  5. RIFAMPICIN [Concomitant]
     Active Substance: RIFAMPIN
     Indication: ABSCESS
     Dosage: 600 MG, DAILY
     Route: 048

REACTIONS (1)
  - Pathogen resistance [Recovered/Resolved]

NARRATIVE: CASE EVENT DATE: 2014
